FAERS Safety Report 5869113-1 (Version None)
Quarter: 2008Q3

REPORT INFORMATION
  Report Type: 
  Country: None (occurrence: None)
  Receive Date: 20080828
  Receipt Date: 20080819
  Transmission Date: 20090109
  Serious: Yes (Hospitalization)
  Sender: FDA-Public Use
  Company Number: 2008AL009684

PATIENT
  Age: 73 Year
  Sex: Female

DRUGS (4)
  1. DIGOXIN [Suspect]
     Indication: CARDIAC DISORDER
     Dosage: 0.25MG, DAILY, PO
     Route: 048
     Dates: start: 20080108, end: 20080215
  2. ASPIRIN [Concomitant]
  3. REVATIO [Concomitant]
  4. TRACIEER [Concomitant]

REACTIONS (3)
  - ASTHENIA [None]
  - CARDIOACTIVE DRUG LEVEL INCREASED [None]
  - HEART RATE DECREASED [None]
